FAERS Safety Report 4788780-7 (Version None)
Quarter: 2005Q4

REPORT INFORMATION
  Report Type: 
  Country: None (occurrence: None)
  Receive Date: 20051004
  Receipt Date: 20050928
  Transmission Date: 20060501
  Serious: Yes (Other)
  Sender: FDA-Public Use
  Company Number: GBWYE014228SEP05

PATIENT
  Age: 49 Year
  Sex: Female

DRUGS (3)
  1. RAPAMUNE [Suspect]
     Indication: PROPHYLAXIS AGAINST TRANSPLANT REJECTION
     Dates: start: 20020601
  2. AZATHIOPRINE [Suspect]
  3. HYDROXYCHLOROQUINE SULFATE [Suspect]
     Indication: ARTHRALGIA

REACTIONS (3)
  - DRUG INTERACTION [None]
  - LEUKOPENIA [None]
  - PLATELET COUNT DECREASED [None]
